FAERS Safety Report 7268992-3 (Version None)
Quarter: 2011Q1

REPORT INFORMATION
  Report Type: 
  Country: None (occurrence: None)
  Receive Date: 20110201
  Receipt Date: 20110119
  Transmission Date: 20110831
  Serious: Yes (Life-Threatening)
  Sender: FDA-Public Use
  Company Number: BR-BAYER-2011-006344

PATIENT
  Sex: Female
  Weight: 54 kg

DRUGS (1)
  1. AVELOX [Suspect]
     Indication: UTERINE INFECTION
     Dosage: 1 DF, QD
     Route: 048
     Dates: start: 20101201, end: 20101201

REACTIONS (3)
  - DYSPNOEA [None]
  - ANXIETY [None]
  - DEPRESSED MOOD [None]
